FAERS Safety Report 4596496-5 (Version None)
Quarter: 2005Q1

REPORT INFORMATION
  Report Type: 
  Country: None (occurrence: None)
  Receive Date: 20050228
  Receipt Date: 20050216
  Transmission Date: 20050727
  Serious: Yes (Hospitalization, Other)
  Sender: FDA-Public Use
  Company Number: 2005-02-1278

PATIENT
  Age: 84 Year
  Sex: Female

DRUGS (2)
  1. ALBUTEROL SULFATE [Suspect]
     Indication: CHRONIC OBSTRUCTIVE PULMONARY DISEASE
     Dosage: 5 MG Q2HX6 INHALATION
     Route: 055
  2. ALEDRONATE [Concomitant]

REACTIONS (15)
  - ATRIAL FIBRILLATION [None]
  - BLOOD PRESSURE SYSTOLIC INCREASED [None]
  - CHEST DISCOMFORT [None]
  - COLLAPSE OF LUNG [None]
  - CYANOSIS [None]
  - DRUG EFFECT DECREASED [None]
  - DYSPNOEA EXERTIONAL [None]
  - ELECTROCARDIOGRAM ST SEGMENT ELEVATION [None]
  - MYOCARDIAL INFARCTION [None]
  - PRODUCTIVE COUGH [None]
  - RHINORRHOEA [None]
  - TACHYCARDIA [None]
  - TACHYPNOEA [None]
  - UNDERWEIGHT [None]
  - WHEEZING [None]
